FAERS Safety Report 23098658 (Version 3)
Quarter: 2024Q1

REPORT INFORMATION
  Report Type: Report from Study
  Country: US (occurrence: US)
  Receive Date: 20231023
  Receipt Date: 20240213
  Transmission Date: 20240409
  Serious: Yes (Other)
  Sender: FDA-Public Use
  Company Number: US-ABBVIE-4749391

PATIENT
  Sex: Male

DRUGS (11)
  1. LUPRON [Suspect]
     Active Substance: LEUPROLIDE ACETATE
     Indication: Prostate cancer
     Route: 065
  2. LUPRON [Suspect]
     Active Substance: LEUPROLIDE ACETATE
     Indication: Prostate cancer
  3. CITRACAL CALCIUM PEARLS + D3 [Concomitant]
     Indication: Product used for unknown indication
     Route: 048
     Dates: start: 20230307
  4. CLARITIN [Concomitant]
     Active Substance: LORATADINE
     Indication: Product used for unknown indication
  5. ENZALUTAMIDE [Suspect]
     Active Substance: ENZALUTAMIDE
     Indication: Prostate cancer
     Dosage: LAST ADMINISTRATIONDEC 2022
     Route: 048
     Dates: start: 20221216
  6. ENZALUTAMIDE [Suspect]
     Active Substance: ENZALUTAMIDE
     Indication: Prostate cancer
     Route: 048
  7. ENZALUTAMIDE [Suspect]
     Active Substance: ENZALUTAMIDE
     Indication: Prostate cancer
     Route: 048
  8. ENZALUTAMIDE [Suspect]
     Active Substance: ENZALUTAMIDE
     Indication: Prostate cancer
     Route: 048
     Dates: start: 20221230
  9. ENZALUTAMIDE [Suspect]
     Active Substance: ENZALUTAMIDE
     Indication: Prostate cancer
     Route: 048
  10. THYROGEN [Concomitant]
     Active Substance: THYROTROPIN ALFA
     Indication: Product used for unknown indication
  11. LEVOTHYROXINE SODIUM [Concomitant]
     Active Substance: LEVOTHYROXINE SODIUM
     Indication: Product used for unknown indication

REACTIONS (9)
  - Thyroid cancer [Unknown]
  - Tracheal compression [Unknown]
  - Bone cancer [Unknown]
  - Hot flush [Unknown]
  - Fatigue [Not Recovered/Not Resolved]
  - Thyroid disorder [Unknown]
  - Bladder cancer [Unknown]
  - Lymphoma [Unknown]
  - Loss of personal independence in daily activities [Unknown]
